FAERS Safety Report 5545823-0 (Version None)
Quarter: 2007Q4

REPORT INFORMATION
  Report Type: 
  Country: None (occurrence: None)
  Receive Date: 20071211
  Receipt Date: 20070828
  Transmission Date: 20080405
  Serious: Yes (Other)
  Sender: FDA-Public Use
  Company Number: US-ASTRAZENECA-2007UW20536

PATIENT
  Age: 24 Year
  Sex: Female
  Weight: 47.6 kg

DRUGS (5)
  1. SYMBICORT [Suspect]
     Indication: ASTHMA
     Route: 055
  2. VITAMINS [Concomitant]
  3. ALBUTEROL (PRO-AIR) [Concomitant]
  4. ORAL CONTRACEPTIVE PILLS [Concomitant]
  5. ALLEGRA D 24 HOUR [Concomitant]

REACTIONS (3)
  - LIP SWELLING [None]
  - SWOLLEN TONGUE [None]
  - URTICARIA [None]
